FAERS Safety Report 16393377 (Version 1)
Quarter: 2019Q2

REPORT INFORMATION
  Report Type: Spontaneous
  Country: JP (occurrence: JP)
  Receive Date: 20190605
  Receipt Date: 20190605
  Transmission Date: 20190711
  Serious: Yes (Other)
  Sender: FDA-Public Use
  Company Number: JP-PFIZER INC-2019226457

PATIENT
  Sex: Male

DRUGS (3)
  1. ALDACTONE A [Suspect]
     Active Substance: SPIRONOLACTONE
     Dosage: UNK
     Route: 048
  2. MICOMBI COMBINATION [Concomitant]
     Active Substance: HYDROCHLOROTHIAZIDE\TELMISARTAN
     Dosage: UNK
     Route: 048
  3. LIXIANA [Concomitant]
     Active Substance: EDOXABAN TOSYLATE
     Dosage: UNK
     Route: 048

REACTIONS (2)
  - Erythema multiforme [Unknown]
  - Drug eruption [Unknown]
